FAERS Safety Report 8073113-3 (Version None)
Quarter: 2012Q1

REPORT INFORMATION
  Report Type: 
  Country: None (occurrence: None)
  Receive Date: 20120126
  Receipt Date: 20120116
  Transmission Date: 20120608
  Serious: Yes (Hospitalization)
  Sender: FDA-Public Use
  Company Number: TR-NOVOPROD-341034

PATIENT
  Age: 69 Year
  Sex: Male

DRUGS (2)
  1. NOVOSEVEN [Suspect]
     Indication: HAEMORRHAGE
     Dosage: 90 A?G/KG, UNK
     Route: 042
  2. METHYLPREDNISOLONE [Concomitant]
     Dosage: 1MG/KG/DAY

REACTIONS (1)
  - ISCHAEMIC STROKE [None]
